FAERS Safety Report 8379763-9 (Version None)
Quarter: 2012Q2

REPORT INFORMATION
  Report Type: 
  Country: None (occurrence: None)
  Receive Date: 20120523
  Receipt Date: 20120514
  Transmission Date: 20120825
  Serious: Yes (Other)
  Sender: FDA-Public Use
  Company Number: CA-ASTRAZENECA-2011SE67460

PATIENT
  Age: 59 Year
  Sex: Male

DRUGS (15)
  1. SEPTRA DS [Concomitant]
     Dosage: ONCE A DAY
     Route: 065
  2. VALTREX [Concomitant]
     Route: 065
  3. PREZISTA [Interacting]
     Route: 065
  4. CALCIUM AND VITAMIN D [Concomitant]
     Dosage: 500 MG + 400 IU, TWICE A DAY
     Route: 065
  5. ALTACE [Concomitant]
     Route: 065
  6. MARAVIROC [Concomitant]
     Route: 065
  7. CRESTOR [Suspect]
     Route: 048
  8. FOSAMAX [Concomitant]
     Route: 065
  9. NORVIR SEC [Concomitant]
     Route: 065
  10. SYNTHROID [Concomitant]
     Route: 065
  11. FENOFIBRATE [Concomitant]
     Route: 065
  12. ASPIRIN [Concomitant]
     Route: 065
  13. ATIVAN [Concomitant]
     Route: 065
  14. ISENTRESS [Concomitant]
     Route: 065
  15. TESTOSTERONE [Concomitant]
     Route: 065

REACTIONS (2)
  - PALPITATIONS [None]
  - DRUG INTERACTION [None]
